FAERS Safety Report 7404864-9 (Version None)
Quarter: 2011Q1

REPORT INFORMATION
  Report Type: 
  Country: None (occurrence: None)
  Receive Date: 20110311
  Receipt Date: 20101101
  Transmission Date: 20110831
  Serious: Yes (Other)
  Sender: FDA-Public Use
  Company Number: RB-17567-2010

PATIENT
  Sex: Male
  Weight: 3.2205 kg

DRUGS (2)
  1. SUBUTEX [Suspect]
     Indication: DRUG DEPENDENCE
     Dosage: (DOSES VARY FROM 12-16 MG TRANSPLACENTAL), (16 MG QD TRANSMAMMARY)
     Route: 064
     Dates: start: 20100729
  2. SUBUTEX [Suspect]
     Indication: DRUG DEPENDENCE
     Dosage: (DOSES VARY FROM 12-16 MG TRANSPLACENTAL), (16 MG QD TRANSMAMMARY)
     Route: 064
     Dates: start: 20091001, end: 20101029

REACTIONS (2)
  - DRUG WITHDRAWAL SYNDROME NEONATAL [None]
  - FEEDING DISORDER NEONATAL [None]
